FAERS Safety Report 10078713 (Version 1)
Quarter: 2014Q2

REPORT INFORMATION
  Report Type: Report from Study
  Country: DE (occurrence: DE)
  Receive Date: 20140415
  Receipt Date: 20140415
  Transmission Date: 20141212
  Serious: Yes (Hospitalization)
  Sender: FDA-Public Use
  Company Number: DE-AMGEN-DEUCT2014025405

PATIENT
  Age: 51 Year
  Sex: Female
  Weight: 113 kg

DRUGS (8)
  1. PANITUMUMAB [Suspect]
     Indication: OVARIAN CANCER RECURRENT
     Dosage: 90 MG/KG, UNK
     Route: 042
     Dates: start: 20140116
  2. GEMCITABIN [Concomitant]
     Indication: OVARIAN CANCER RECURRENT
     Dosage: 75 %, UNK
     Route: 042
     Dates: start: 20140116
  3. CARBOPLATIN [Concomitant]
     Indication: OVARIAN CANCER RECURRENT
     Dosage: UNK
     Route: 042
     Dates: start: 20140116
  4. RAMIPRIL [Concomitant]
     Indication: HYPERTENSION
     Dosage: 10 UNK, QD
     Route: 048
  5. HCT [Concomitant]
     Indication: HYPERTENSION
     Dosage: 25 UNK, QD
     Route: 048
  6. AMLODIPINE [Concomitant]
     Indication: HYPERTENSION
     Dosage: 5 UNK, QD
     Route: 048
  7. PANTAZOL [Concomitant]
     Indication: PROPHYLAXIS
     Dosage: 40 UNK, QD
     Route: 048
  8. OXYCODONE [Concomitant]
     Indication: PAIN
     Dosage: 20 UNK, BID
     Route: 048

REACTIONS (1)
  - Thrombocytopenia [Not Recovered/Not Resolved]
